FAERS Safety Report 7430855-8 (Version None)
Quarter: 2011Q2

REPORT INFORMATION
  Report Type: 
  Country: None (occurrence: None)
  Receive Date: 20110421
  Receipt Date: 20110407
  Transmission Date: 20111010
  Serious: Yes (Hospitalization)
  Sender: FDA-Public Use
  Company Number: CH-AMGEN-QUU427252

PATIENT
  Age: 59 Year
  Sex: Female
  Weight: 99 kg

DRUGS (6)
  1. FRAXIPARIN                         /00889603/ [Concomitant]
     Dosage: 4 MG, UNK
     Route: 058
     Dates: start: 20100611, end: 20100611
  2. PARACETAMOL [Concomitant]
     Indication: MIGRAINE
     Dosage: 3 G AS NEEDED
     Dates: start: 20100505
  3. ETANERCEPT [Suspect]
     Indication: RHEUMATOID ARTHRITIS
     Dosage: 50 MG, QWK
     Route: 058
     Dates: start: 20100430, end: 20100722
  4. METHOTREXATE [Suspect]
     Indication: RHEUMATOID ARTHRITIS
     Dosage: 10-25 MG ONCE WEEKLY
     Route: 048
     Dates: start: 20100430, end: 20100722
  5. FRAXIPARIN                         /00889603/ [Concomitant]
     Dosage: UNK UNK, UNK
     Route: 058
     Dates: start: 20100623, end: 20100623
  6. PANTOZOL                           /01263202/ [Concomitant]
     Indication: GASTROOESOPHAGEAL REFLUX DISEASE
     Dosage: UNK MG, UNK
     Dates: start: 20100421

REACTIONS (3)
  - SYSTEMIC SCLEROSIS [None]
  - HEPATIC STEATOSIS [None]
  - GASTRITIS EROSIVE [None]
